FAERS Safety Report 8952880 (Version 3)
Quarter: 2013Q2

REPORT INFORMATION
  Report Type: Spontaneous
  Country: US (occurrence: US)
  Receive Date: 20121203
  Receipt Date: 20130612
  Transmission Date: 20140414
  Serious: No
  Sender: FDA-Public Use
  Company Number: US-009507513-1211USA012306

PATIENT
  Age: 19 Year
  Sex: Female
  Weight: 101.13 kg

DRUGS (3)
  1. IMPLANON [Suspect]
     Indication: CONTRACEPTION
     Dosage: 1 DF, UNK
     Route: 059
     Dates: start: 20121109, end: 20121128
  2. LEVOTHYROXINE SODIUM [Concomitant]
  3. PRENATAL VITAMINS [Concomitant]

REACTIONS (4)
  - Photophobia [Not Recovered/Not Resolved]
  - Headache [Not Recovered/Not Resolved]
  - Hyperacusis [Not Recovered/Not Resolved]
  - Alopecia [Not Recovered/Not Resolved]
